FAERS Safety Report 11736971 (Version 1)
Quarter: 2015Q4

REPORT INFORMATION
  Report Type: Spontaneous
  Country: US (occurrence: US)
  Receive Date: 20151110
  Receipt Date: 20151110
  Transmission Date: 20160304
  Serious: Yes (Hospitalization)
  Sender: FDA-Public Use
  Company Number: US-ELI_LILLY_AND_COMPANY-US201204002128

PATIENT
  Age: 58 Year
  Sex: Female

DRUGS (15)
  1. FORTEO [Suspect]
     Active Substance: TERIPARATIDE
     Dosage: 20 UG, QD
  2. TYSABRI [Concomitant]
     Active Substance: NATALIZUMAB
  3. FIORICET [Concomitant]
     Active Substance: ACETAMINOPHEN\BUTALBITAL\CAFFEINE
  4. RECLAST [Concomitant]
     Active Substance: ZOLEDRONIC ACID
  5. ULTRACET [Concomitant]
     Active Substance: ACETAMINOPHEN\TRAMADOL HYDROCHLORIDE
  6. FORTEO [Suspect]
     Active Substance: TERIPARATIDE
     Indication: OSTEOPOROSIS
     Dosage: 20 UG, QD
  7. ZANAFLEX [Concomitant]
     Active Substance: TIZANIDINE HYDROCHLORIDE
  8. TOVIAZ [Concomitant]
     Active Substance: FESOTERODINE FUMARATE
  9. CITRACAL [Concomitant]
     Active Substance: CALCIUM CITRATE
  10. NEURONTIN [Concomitant]
     Active Substance: GABAPENTIN
  11. VITAMIN D [Concomitant]
     Active Substance: CHOLECALCIFEROL
  12. MIRAPEX [Concomitant]
     Active Substance: PRAMIPEXOLE DIHYDROCHLORIDE
  13. ALBUTEROL. [Concomitant]
     Active Substance: ALBUTEROL
  14. ZOLOFT [Concomitant]
     Active Substance: SERTRALINE HYDROCHLORIDE
  15. PRENATAL VITAMINS                  /01549301/ [Concomitant]
     Active Substance: VITAMINS

REACTIONS (9)
  - Bone pain [Unknown]
  - Arthralgia [Unknown]
  - Tremor [Recovered/Resolved]
  - Pain in extremity [Unknown]
  - Pneumonia bacterial [Recovered/Resolved]
  - Nail disorder [Unknown]
  - Asthenia [Recovered/Resolved]
  - Hair growth abnormal [Unknown]
  - Hyperhidrosis [Recovered/Resolved]

NARRATIVE: CASE EVENT DATE: 201204
